FAERS Safety Report 12661447 (Version 1)
Quarter: 2016Q3

REPORT INFORMATION
  Report Type: Report from Study
  Country: CA (occurrence: CA)
  Receive Date: 20160817
  Receipt Date: 20160817
  Transmission Date: 20161109
  Serious: Yes (Death, Other)
  Sender: FDA-Public Use
  Company Number: PHHY2014CA157696

PATIENT
  Age: 71 Year
  Sex: Male

DRUGS (5)
  1. SANDOSTATIN LAR DEPOT [Suspect]
     Active Substance: OCTREOTIDE ACETATE
     Dosage: 30 MG, UNK
     Route: 030
     Dates: end: 20160519
  2. SANDOSTATIN [Suspect]
     Active Substance: OCTREOTIDE ACETATE
     Indication: NEUROENDOCRINE CARCINOMA
     Dosage: 200 UG, UNK
     Route: 058
     Dates: start: 20141105, end: 20141107
  3. SANDOSTATIN LAR DEPOT [Suspect]
     Active Substance: OCTREOTIDE ACETATE
     Indication: NEUROENDOCRINE CARCINOMA
     Dosage: 30 MG, QMO (EVERY 4 WEEKS)
     Route: 030
     Dates: start: 20141127
  4. METFORMIN [Concomitant]
     Active Substance: METFORMIN HYDROCHLORIDE
     Indication: PRODUCT USED FOR UNKNOWN INDICATION
     Route: 065
  5. SANDOSTATIN LAR DEPOT [Suspect]
     Active Substance: OCTREOTIDE ACETATE
     Dosage: 60 MG, QMO
     Route: 030
     Dates: start: 20160318

REACTIONS (21)
  - Malaise [Unknown]
  - Proctalgia [Unknown]
  - Weight decreased [Unknown]
  - Flatulence [Unknown]
  - Abdominal pain [Unknown]
  - Death [Fatal]
  - Malignant neoplasm progression [Unknown]
  - Blood glucose increased [Unknown]
  - Injection site pain [Recovering/Resolving]
  - Abdominal discomfort [Unknown]
  - Abdominal pain upper [Unknown]
  - Constipation [Unknown]
  - Insomnia [Unknown]
  - Headache [Unknown]
  - Neoplasm progression [Unknown]
  - Metastases to liver [Unknown]
  - Blood pressure systolic increased [Unknown]
  - Dysstasia [Unknown]
  - Pollakiuria [Unknown]
  - Faeces hard [Unknown]
  - Diarrhoea [Unknown]

NARRATIVE: CASE EVENT DATE: 20141127
